FAERS Safety Report 6516239-5 (Version None)
Quarter: 2009Q4

REPORT INFORMATION
  Report Type: 
  Country: None (occurrence: None)
  Receive Date: 20091223
  Receipt Date: 20091217
  Transmission Date: 20100525
  Serious: Yes (Hospitalization, Other)
  Sender: FDA-Public Use
  Company Number: PL-BAYER-200943285GPV

PATIENT
  Age: 61 Year
  Sex: Male
  Weight: 72 kg

DRUGS (12)
  1. SORAFENIB [Suspect]
     Indication: RENAL CELL CARCINOMA
     Dosage: TOTAL DAILY DOSE: 400 MG
     Route: 048
     Dates: start: 20091103, end: 20091103
  2. SORAFENIB [Suspect]
     Dosage: TOTAL DAILY DOSE: 800 MG
     Route: 048
     Dates: start: 20091104, end: 20091111
  3. SORAFENIB [Suspect]
     Dosage: TOTAL DAILY DOSE: 400 MG
     Route: 048
     Dates: start: 20091112, end: 20091112
  4. SORAFENIB [Suspect]
     Dosage: TOTAL DAILY DOSE: 800 MG
     Route: 048
     Dates: start: 20091113, end: 20091124
  5. SORAFENIB [Suspect]
     Dosage: TOTAL DAILY DOSE: 800 MG
     Route: 048
     Dates: start: 20091214
  6. INFLUVAC [Concomitant]
     Route: 058
     Dates: start: 20091112, end: 20091112
  7. THYROSOL [Concomitant]
     Indication: HYPERTHYROIDISM
     Route: 048
     Dates: start: 20091010
  8. AMLOZEK [Concomitant]
     Indication: HYPERTENSION
     Route: 048
     Dates: start: 20081230
  9. TERTENSIF SR [Concomitant]
     Indication: HYPERTENSION
     Route: 048
     Dates: start: 20090210
  10. TRITACE [Concomitant]
     Indication: HYPERTENSION
     Route: 048
     Dates: start: 20090210
  11. ZYRTEC [Concomitant]
     Indication: PHOTODERMATOSIS
     Route: 048
     Dates: start: 19980101
  12. MILURIT [Concomitant]
     Indication: PROPHYLAXIS
     Dates: start: 20090708

REACTIONS (1)
  - CHOLANGITIS [None]
